FAERS Safety Report 12718821 (Version 1)
Quarter: 2016Q3

REPORT INFORMATION
  Report Type: Spontaneous
  Country: US (occurrence: US)
  Receive Date: 20160906
  Receipt Date: 20160906
  Transmission Date: 20161109
  Serious: No
  Sender: FDA-Public Use
  Company Number: US-FRESENIUS MEDICAL CARE RENAL THERAPIES GROUP-FMC-1606-000212

PATIENT
  Sex: Female

DRUGS (2)
  1. PHOSLYRA [Suspect]
     Active Substance: CALCIUM ACETATE
     Indication: HYPERPHOSPHATAEMIA
     Dosage: WITH MEALS
     Route: 048
     Dates: start: 20160607
  2. PHOSLYRA [Suspect]
     Active Substance: CALCIUM ACETATE
     Dosage: WITH MEALS
     Route: 048
     Dates: start: 20160608

REACTIONS (2)
  - Oesophageal pain [Recovered/Resolved with Sequelae]
  - Abdominal discomfort [Recovered/Resolved]

NARRATIVE: CASE EVENT DATE: 20160607
